FAERS Safety Report 6671105-X (Version None)
Quarter: 2010Q2

REPORT INFORMATION
  Report Type: 
  Country: None (occurrence: None)
  Receive Date: 20100407
  Receipt Date: 20100401
  Transmission Date: 20101027
  Serious: Yes (Death, Other)
  Sender: FDA-Public Use
  Company Number: PHEH2009US15632

PATIENT
  Sex: Male

DRUGS (7)
  1. SANDOSTATIN LAR [Suspect]
     Indication: CARCINOID TUMOUR
     Dosage: 30 MG, QMO
     Route: 030
     Dates: start: 20050928, end: 20090528
  2. COUMADIN [Concomitant]
     Indication: DEEP VEIN THROMBOSIS
     Dosage: 5 MG, QD
     Route: 048
     Dates: start: 20070101
  3. NIFEREX [Concomitant]
     Indication: ANAEMIA
     Dosage: 150 MG, BID
     Route: 048
  4. ATIVAN [Concomitant]
     Indication: NAUSEA
     Dosage: 0.5 MG, PRN
     Route: 048
     Dates: start: 20090303
  5. ATIVAN [Concomitant]
     Indication: ANXIETY
  6. DURAGESIC-100 [Concomitant]
     Indication: PAIN
     Dosage: 150 UG, UNK
     Route: 061
     Dates: start: 20080220
  7. OXYCODONE [Concomitant]
     Dosage: 5 MG, PRN
     Route: 048

REACTIONS (6)
  - MALIGNANT NEOPLASM PROGRESSION [None]
  - METASTASES TO LIVER [None]
  - METASTASES TO PANCREAS [None]
  - METASTASIS [None]
  - PAIN [None]
  - WEIGHT DECREASED [None]
